FAERS Safety Report 9253146 (Version 1)
Quarter: 2013Q2

REPORT INFORMATION
  Report Type: Report from Study
  Country: US (occurrence: US)
  Receive Date: 20130424
  Receipt Date: 20130424
  Transmission Date: 20140414
  Serious: Yes (Hospitalization)
  Sender: FDA-Public Use
  Company Number: US-ACTELION-A-US2013-78552

PATIENT
  Age: 72 Year
  Sex: Female

DRUGS (1)
  1. TRACLEER [Suspect]
     Indication: PULMONARY ARTERIAL HYPERTENSION
     Dosage: UNK
     Route: 048

REACTIONS (6)
  - Pulmonary oedema [Unknown]
  - Pulmonary arterial hypertension [Unknown]
  - Cardiac monitoring [Unknown]
  - Fluid retention [Unknown]
  - Dyspnoea [Unknown]
  - Cough [Unknown]
